FAERS Safety Report 4533739-8 (Version None)
Quarter: 2004Q4

REPORT INFORMATION
  Report Type: 
  Country: None (occurrence: None)
  Receive Date: 20041221
  Receipt Date: 20041108
  Transmission Date: 20050328
  Serious: Yes (Other)
  Sender: FDA-Public Use
  Company Number: 115444

PATIENT
  Age: 46 Year
  Sex: Female
  Weight: 64 kg

DRUGS (3)
  1. VIANI FORTE DISKUS [Suspect]
     Indication: ASTHMA
     Dosage: 1PUFF TWICE PER DAY
     Route: 055
     Dates: start: 20040706, end: 20040816
  2. SPIRIVA [Concomitant]
     Indication: ASTHMA
     Dosage: 1PUFF PER DAY
     Route: 065
     Dates: start: 20040715, end: 20040806
  3. SYMBICORT [Concomitant]
     Dosage: 164.5UG UNKNOWN
     Route: 065
     Dates: start: 20040816, end: 20041130

REACTIONS (7)
  - ABDOMINAL PAIN [None]
  - DECREASED APPETITE [None]
  - HEPATIC ENZYME INCREASED [None]
  - MUSCLE CRAMP [None]
  - NAUSEA [None]
  - VOMITING [None]
  - WEIGHT DECREASED [None]
